FAERS Safety Report 7736959-4 (Version None)
Quarter: 2011Q3

REPORT INFORMATION
  Report Type: 
  Country: None (occurrence: None)
  Receive Date: 20110908
  Receipt Date: 20110829
  Transmission Date: 20111222
  Serious: Yes (Hospitalization)
  Sender: FDA-Public Use
  Company Number: DE-ROCHE-799790

PATIENT
  Sex: Male
  Weight: 88.5 kg

DRUGS (14)
  1. HYDROCHLOROTHIAZID [Concomitant]
     Dosage: START DATE: LONG BEFORE MAY 2011
     Dates: start: 20110501
  2. EZETIMIBE [Concomitant]
     Dosage: START DATE: LONG BEFORE MAY 2011
  3. GLYBURIDE [Concomitant]
     Dosage: START DATE: LONG BEFORE MAY 2011
  4. BEVACIZUMAB [Suspect]
     Dosage: DOSAGE FORM: IN 250 ML SALINE (NACL) LAST DOSE PRIOR TO SAE: 01 AUGUST 2011
     Route: 042
     Dates: start: 20100503, end: 20110822
  5. FLUOROURACIL [Suspect]
     Dosage: OVER 46 HOURS.
     Route: 042
     Dates: end: 20110822
  6. ESCITALOPRAM [Concomitant]
     Dosage: START DATE: LONG BEFORE MAY 2011
  7. METFORMIN HCL [Concomitant]
     Dosage: START DATE: LONG BEFORE MAY 2011
  8. ENALAPRIL MALEATE [Concomitant]
     Dosage: START DATE: LONG BEFORE MAY 2011
  9. IBUPROFEN [Concomitant]
     Dosage: DOSE: 2 X 600 START DATE: LONG BEFORE MAY 2011
  10. FLUOROURACIL [Suspect]
     Dosage: BOLUS
     Route: 042
     Dates: end: 20110822
  11. OXALIPLATIN [Suspect]
     Dosage: DOSAGE FORM: IN 250 ML GLUCOSE 5 %. LAST DOSE PRIOR TO SAE: 01 AUGUST 2011.
     Route: 042
     Dates: start: 20100503, end: 20110822
  12. LEUCOVORIN CALCIUM [Suspect]
     Dosage: DOSAGE FORM: IN 250 ML SALINE.
     Route: 042
     Dates: end: 20110822
  13. INSULIN [Concomitant]
     Dosage: START DATE: LONG BEFORE MAY 2011
  14. ASPIRIN [Concomitant]
     Dosage: START DATE: LONG BEFORE MAY 2011

REACTIONS (2)
  - ACUTE CORONARY SYNDROME [None]
  - CORONARY ARTERY STENOSIS [None]
